FAERS Safety Report 8799691 (Version 3)
Quarter: 2013Q1

REPORT INFORMATION
  Report Type: Spontaneous
  Country: JP (occurrence: None)
  Receive Date: 20120914
  Receipt Date: 20121025
  Transmission Date: 20140127
  Serious: Yes (Hospitalization)
  Sender: FDA-Public Use
  Company Number: 2012S1000937

PATIENT
  Age: 59 Year
  Sex: Male
  Weight: 54 kg

DRUGS (9)
  1. LIVALO [Suspect]
     Indication: HYPERLIPIDAEMIA
     Route: 048
     Dates: end: 20120703
  2. PATYUNA [Suspect]
     Route: 048
     Dates: start: 201206, end: 20120703
  3. PERMILTIN [Suspect]
     Indication: RENAL IMPAIRMENT
     Route: 048
     Dates: start: 201206, end: 20120703
  4. OLMETEC (OLMESARTAN MEDOXOMIL) [Suspect]
     Indication: HYPERTENSION
     Route: 048
     Dates: end: 20120703
  5. SEIBULE [Suspect]
     Indication: TYPE 1 DIABETES MELLITUS
     Route: 048
     Dates: end: 20120703
  6. BLOPRESS [Suspect]
     Indication: HYPERTENSION
     Route: 048
     Dates: end: 20120703
  7. ANOPROLIN [Suspect]
     Indication: HYPERURICAEMIA
     Route: 048
     Dates: end: 20120703
  8. HUMALOG [Concomitant]
  9. LANTUS [Concomitant]

REACTIONS (6)
  - Liver disorder [None]
  - Oedema [None]
  - Jaundice [None]
  - Pruritus generalised [None]
  - Decreased appetite [None]
  - Vomiting [None]
